FAERS Safety Report 5536606-6 (Version None)
Quarter: 2007Q4

REPORT INFORMATION
  Report Type: 
  Country: None (occurrence: None)
  Receive Date: 20071206
  Receipt Date: 20070907
  Transmission Date: 20080405
  Serious: Yes (Other)
  Sender: FDA-Public Use
  Company Number: US-AMGEN-STX240072

PATIENT
  Sex: Male

DRUGS (9)
  1. ENBREL [Suspect]
     Indication: RHEUMATOID ARTHRITIS
     Route: 030
     Dates: start: 20030924, end: 20070822
  2. METHOTREXATE [Concomitant]
  3. SULFASALAZINE [Concomitant]
     Route: 065
     Dates: start: 20030101
  4. PLAQUENIL [Concomitant]
     Route: 065
     Dates: start: 20030101
  5. FINASTERIDE [Concomitant]
  6. OMEPRAZOLE [Concomitant]
  7. ALENDRONATE SODIUM [Concomitant]
  8. DICYCLOMINE HYDROCHLORIDE [Concomitant]
  9. TERAZOSIN HCL [Concomitant]

REACTIONS (1)
  - BLADDER CANCER STAGE 0, WITH CANCER IN SITU [None]
